FAERS Safety Report 6899644-7 (Version None)
Quarter: 2010Q3

REPORT INFORMATION
  Report Type: 
  Country: None (occurrence: None)
  Receive Date: 20100708
  Receipt Date: 20090701
  Transmission Date: 20110219
  Serious: Yes (Other)
  Sender: FDA-Public Use
  Company Number: 2009237503

PATIENT
  Age: 33 Year
  Sex: Male
  Weight: 85.3 kg

DRUGS (3)
  1. CHANTIX [Suspect]
     Indication: SMOKING CESSATION THERAPY
     Dosage: 0.5 MG, 2X/DAY, ORAL
     Route: 048
     Dates: start: 20090624, end: 20090630
  2. HYDROCHLOROTHIAZIDE [Concomitant]
  3. AMLODIPINE BESYLATE [Concomitant]

REACTIONS (5)
  - ABNORMAL DREAMS [None]
  - DIZZINESS [None]
  - FEELING ABNORMAL [None]
  - HALLUCINATION [None]
  - SUICIDAL IDEATION [None]
